FAERS Safety Report 19954431 (Version 3)
Quarter: 2021Q4

REPORT INFORMATION
  Report Type: Spontaneous
  Country: IT (occurrence: IT)
  Receive Date: 20211014
  Receipt Date: 20211103
  Transmission Date: 20220303
  Serious: Yes (Other)
  Sender: FDA-Public Use
  Company Number: NVSC2021IT204039

PATIENT
  Age: 59 Year
  Sex: Female

DRUGS (1)
  1. BROLUCIZUMAB [Suspect]
     Active Substance: BROLUCIZUMAB
     Indication: Age-related macular degeneration
     Dosage: 0.165 ML, (RIGHT EYE)
     Route: 065
     Dates: start: 20210805

REACTIONS (10)
  - Subretinal fluid [Unknown]
  - Retinal thickening [Unknown]
  - Vitreous floaters [Recovering/Resolving]
  - Vitreous detachment [Unknown]
  - Vitritis [Not Recovered/Not Resolved]
  - Neovascularisation [Unknown]
  - Papillitis [Not Recovered/Not Resolved]
  - Eye swelling [Unknown]
  - Visual impairment [Unknown]
  - Retinal pigmentation [Unknown]

NARRATIVE: CASE EVENT DATE: 20211004
